FAERS Safety Report 5705919-7 (Version None)
Quarter: 2008Q2

REPORT INFORMATION
  Report Type: 
  Country: None (occurrence: None)
  Receive Date: 20080415
  Receipt Date: 20080409
  Transmission Date: 20081010
  Serious: Yes (Death, Hospitalization)
  Sender: FDA-Public Use
  Company Number: GB-WYE-G01312208

PATIENT
  Sex: Male

DRUGS (1)
  1. TORISEL [Suspect]
     Indication: RENAL CELL CARCINOMA
     Dosage: 25MG, FREQUENCY UNKNOWN
     Route: 042
     Dates: start: 20080319, end: 20080319

REACTIONS (1)
  - PERFORMANCE STATUS DECREASED [None]
